FAERS Safety Report 6254136-3 (Version None)
Quarter: 2009Q3

REPORT INFORMATION
  Report Type: 
  Country: None (occurrence: None)
  Receive Date: 20090702
  Receipt Date: 20090630
  Transmission Date: 20100115
  Serious: Yes (Life-Threatening, Hospitalization)
  Sender: FDA-Public Use
  Company Number: US-BAYER-200920936NA

PATIENT
  Age: 66 Year
  Sex: Male

DRUGS (4)
  1. LEVITRA [Suspect]
     Indication: ERECTILE DYSFUNCTION
     Dosage: TOTAL DAILY DOSE: 10 MG  UNIT DOSE: 10 MG
     Route: 048
     Dates: start: 20090508
  2. COUMADIN [Concomitant]
  3. AMIODARONE HCL [Concomitant]
  4. HTN NOS [Concomitant]

REACTIONS (1)
  - CARDIAC ARREST [None]
